FAERS Safety Report 9028580 (Version 2)
Quarter: 2013Q1

REPORT INFORMATION
  Report Type: Spontaneous
  Country: IE (occurrence: IE)
  Receive Date: 20130124
  Receipt Date: 20130214
  Transmission Date: 20140127
  Serious: Yes (Other)
  Sender: FDA-Public Use
  Company Number: IE-GLAXOSMITHKLINE-B0856476A

PATIENT
  Sex: Female

DRUGS (1)
  1. AVAMYS [Suspect]
     Indication: NASAL OBSTRUCTION
     Route: 045
     Dates: start: 2011

REACTIONS (3)
  - Ageusia [Unknown]
  - Anosmia [Unknown]
  - Dysgeusia [Unknown]
